FAERS Safety Report 7284766-1 (Version None)
Quarter: 2011Q1

REPORT INFORMATION
  Report Type: 
  Country: None (occurrence: None)
  Receive Date: 20110210
  Receipt Date: 20110118
  Transmission Date: 20110831
  Serious: Yes (Other)
  Sender: FDA-Public Use
  Company Number: US-BAYER-200811982NA

PATIENT
  Sex: Female
  Weight: 55 kg

DRUGS (41)
  1. CELEBREX [Concomitant]
  2. SENSIPAR [Concomitant]
  3. MYFORTIC [Concomitant]
  4. EXFORGE [Concomitant]
  5. OMNISCAN [Suspect]
     Dates: start: 20050320, end: 20050320
  6. EPOGEN [Concomitant]
  7. FERROUS SULFATE TAB [Concomitant]
  8. PROCARDIA [Concomitant]
  9. ZEMPLAR [Concomitant]
  10. CYTOXAN [Concomitant]
     Dates: start: 19880101, end: 19910101
  11. MAGNEVIST [Suspect]
     Indication: NUCLEAR MAGNETIC RESONANCE IMAGING
     Dates: start: 19961030, end: 19961030
  12. MAGNEVIST [Suspect]
     Indication: NUCLEAR MAGNETIC RESONANCE IMAGING ABDOMINAL
     Dates: start: 19970430, end: 19970430
  13. MAGNEVIST [Suspect]
     Dates: start: 20001108, end: 20001108
  14. PROGRAF [Concomitant]
  15. SPIRONOLACTONE [Concomitant]
  16. FOLIC ACID [Concomitant]
  17. CLONIDINE [Concomitant]
  18. AMLODIPINE BESYLATE [Concomitant]
  19. SYNTHROID [Concomitant]
  20. MIACALCIN [Concomitant]
  21. PREDNISONE [Concomitant]
  22. OMNISCAN [Suspect]
     Indication: NUCLEAR MAGNETIC RESONANCE IMAGING
     Dates: start: 20050130, end: 20050130
  23. ZESTRIL [Concomitant]
  24. NEPHROVITE [VIT C,VIT H,B5,B12,B9,B3,B6,B2,B1 HCL] [Concomitant]
  25. ADVAIR [Concomitant]
  26. MAGNEVIST [Suspect]
     Dates: start: 19971117, end: 19971117
  27. MAGNEVIST [Suspect]
     Dates: start: 20020130, end: 20020130
  28. MAGNEVIST [Suspect]
     Dates: start: 20050130, end: 20050130
  29. MAGNEVIST [Suspect]
     Dates: start: 20040520, end: 20040520
  30. MAGNEVIST [Suspect]
     Dates: start: 20030320, end: 20030320
  31. PREMPRO [Concomitant]
  32. ALEVE [Concomitant]
  33. ARANESP [Concomitant]
  34. ACTIVASE [Concomitant]
  35. DEMADEX [Concomitant]
  36. MAGNEVIST [Suspect]
     Dates: start: 19981231, end: 19981231
  37. MAGNEVIST [Suspect]
     Dates: start: 19991109, end: 19991109
  38. THYROID THERAPY [Concomitant]
  39. ROCALTROL [Concomitant]
  40. RENAGEL [Concomitant]
  41. METOPROLOL [Concomitant]

REACTIONS (27)
  - JOINT CONTRACTURE [None]
  - PARAESTHESIA [None]
  - MUSCULAR WEAKNESS [None]
  - JOINT RANGE OF MOTION DECREASED [None]
  - ABASIA [None]
  - MUSCULOSKELETAL PAIN [None]
  - PAIN [None]
  - MUSCULOSKELETAL STIFFNESS [None]
  - NEPHROGENIC SYSTEMIC FIBROSIS [None]
  - GENERAL PHYSICAL HEALTH DETERIORATION [None]
  - GAIT DISTURBANCE [None]
  - SKIN TIGHTNESS [None]
  - SKIN INDURATION [None]
  - HYPOAESTHESIA [None]
  - SKIN HYPERTROPHY [None]
  - MYOCARDIAL FIBROSIS [None]
  - MUSCLE TIGHTNESS [None]
  - SCAR [None]
  - SKIN WRINKLING [None]
  - SKIN HYPERPIGMENTATION [None]
  - DYSPNOEA [None]
  - INJURY [None]
  - TENDON PAIN [None]
  - SKIN DISORDER [None]
  - OEDEMA PERIPHERAL [None]
  - SKIN LESION [None]
  - PULMONARY FIBROSIS [None]
